FAERS Safety Report 4581814-4 (Version None)
Quarter: 2005Q1

REPORT INFORMATION
  Report Type: 
  Country: None (occurrence: None)
  Receive Date: 20050214
  Receipt Date: 20040309
  Transmission Date: 20050727
  Serious: No
  Sender: FDA-Public Use
  Company Number: US-GLAXOSMITHKLINE-A0501994A

PATIENT
  Sex: Male

DRUGS (3)
  1. LAMICTAL [Suspect]
     Indication: EPILEPSY
     Dosage: 400MG THREE TIMES PER DAY
     Route: 048
  2. TEGRETOL [Concomitant]
  3. NEURONTIN [Concomitant]

REACTIONS (1)
  - AMNESIA [None]
